FAERS Safety Report 6732059-0 (Version None)
Quarter: 2010Q2

REPORT INFORMATION
  Report Type: 
  Country: None (occurrence: None)
  Receive Date: 20100519
  Receipt Date: 20100510
  Transmission Date: 20101027
  Serious: Yes (Hospitalization, Other)
  Sender: FDA-Public Use
  Company Number: AU-JNJFOC-20100503179

PATIENT
  Sex: Female

DRUGS (3)
  1. TOPAMAX [Suspect]
     Indication: MIGRAINE PROPHYLAXIS
     Route: 065
  2. SYMBICORT [Concomitant]
     Route: 065
  3. YASMIN [Concomitant]
     Route: 065

REACTIONS (8)
  - EPISCLERITIS [None]
  - EYE PAIN [None]
  - HEADACHE [None]
  - NAUSEA [None]
  - SCLERITIS [None]
  - VISION BLURRED [None]
  - VISUAL IMPAIRMENT [None]
  - VOMITING [None]
